FAERS Safety Report 16427717 (Version 1)
Quarter: 2019Q2

REPORT INFORMATION
  Report Type: Spontaneous
  Country: CO (occurrence: CO)
  Receive Date: 20190613
  Receipt Date: 20190613
  Transmission Date: 20190711
  Serious: Yes (Hospitalization, Other)
  Sender: FDA-Public Use
  Company Number: CO-FRESENIUS KABI-FK201906527

PATIENT
  Age: 38 Year
  Sex: Male

DRUGS (2)
  1. CISPLATIN (MANUFACTURER UNKNOWN) [Suspect]
     Active Substance: CISPLATIN
     Indication: BUSCHKE-LOWENSTEIN^S TUMOUR
     Route: 065
  2. FLUOROURACIL. [Suspect]
     Active Substance: FLUOROURACIL
     Indication: BUSCHKE-LOWENSTEIN^S TUMOUR
     Route: 065

REACTIONS (1)
  - Herpes simplex [Recovered/Resolved]
